FAERS Safety Report 8598950-8 (Version None)
Quarter: 2012Q3

REPORT INFORMATION
  Report Type: 
  Country: None (occurrence: None)
  Receive Date: 20120816
  Receipt Date: 20120112
  Transmission Date: 20120928
  Serious: Yes (Hospitalization)
  Sender: FDA-Public Use
  Company Number: US-ROCHE-1101544

PATIENT
  Sex: Male

DRUGS (7)
  1. HEPARIN [Concomitant]
     Dosage: 9000 UNITS
     Route: 042
  2. ACTIVASE [Suspect]
     Dosage: NEXT 30 MIN
  3. ASPIRIN [Concomitant]
     Route: 048
  4. ACTIVASE [Suspect]
     Dosage: NEXT ONE HOUR
  5. MORPHINE [Concomitant]
     Route: 042
  6. ACTIVASE [Suspect]
     Indication: ACUTE MYOCARDIAL INFARCTION
     Route: 040
  7. HEPARIN [Concomitant]
     Dosage: 1200 UNITS PER HOUR
     Route: 041

REACTIONS (3)
  - CHEST PAIN [None]
  - VENTRICULAR EXTRASYSTOLES [None]
  - RHYTHM IDIOVENTRICULAR [None]
